FAERS Safety Report 7539735-0 (Version None)
Quarter: 2011Q2

REPORT INFORMATION
  Report Type: 
  Country: None (occurrence: None)
  Receive Date: 20110610
  Receipt Date: 20110526
  Transmission Date: 20111010
  Serious: Yes (Other)
  Sender: FDA-Public Use
  Company Number: PHHY2011DE49789

PATIENT
  Sex: Female

DRUGS (2)
  1. COMBAREN [Suspect]
     Indication: OSTEOCHONDROSIS
     Dosage: 50 MG, UNK
     Route: 048
     Dates: start: 19950101
  2. FLUPIRTINE [Concomitant]
     Indication: PAIN
     Route: 048
     Dates: start: 20110201

REACTIONS (2)
  - CALCULUS URETERIC [None]
  - ABDOMINAL PAIN UPPER [None]
